FAERS Safety Report 8512964-5 (Version None)
Quarter: 2012Q3

REPORT INFORMATION
  Report Type: 
  Country: None (occurrence: None)
  Receive Date: 20120705
  Receipt Date: 20120620
  Transmission Date: 20120928
  Serious: Yes (Death, Hospitalization, Other)
  Sender: FDA-Public Use
  Company Number: 2012P1047269

PATIENT
  Age: 82 Year
  Sex: Female
  Weight: 54.8852 kg

DRUGS (16)
  1. KETEROLAC TROMETAMOL [Concomitant]
  2. CITALOPRAM HYDROBROMIDE [Suspect]
     Indication: DEPRESSION
  3. CLONAZEPAM [Concomitant]
  4. EFFEXOR [Suspect]
     Indication: DEPRESSION
  5. GLUCOSAMINE SULPHATE [Concomitant]
  6. LEVOTHYROXINE SODIUM [Concomitant]
  7. TRANYLCYPROMINE SULFATE [Suspect]
     Indication: DEPRESSION
     Dosage: 10 MG;QD;PO
     Route: 048
     Dates: start: 19920101, end: 20100101
  8. OXICARBOXINE (NO PREF. NAME) [Suspect]
     Indication: DEPRESSION
  9. IRON POLYMALTOSE [Concomitant]
  10. BENICAR [Concomitant]
  11. CILOSTAZOL [Concomitant]
  12. AURORIX (MOCLOBEMIDE) (NO PREF. NAME) [Suspect]
     Indication: DEPRESSION
  13. PRAVASTATIN SODIUM [Concomitant]
  14. OMEPRAZOLE [Concomitant]
  15. CALCIUM CARBONATE [Concomitant]
  16. ALENDRONATE SODIUM [Concomitant]

REACTIONS (4)
  - PERSONALITY CHANGE [None]
  - AGGRESSION [None]
  - HYPERTENSION [None]
  - PULMONARY EMBOLISM [None]
